FAERS Safety Report 7361481-7 (Version None)
Quarter: 2011Q1

REPORT INFORMATION
  Report Type: 
  Country: None (occurrence: None)
  Receive Date: 20110318
  Receipt Date: 20110221
  Transmission Date: 20110831
  Serious: No
  Sender: FDA-Public Use
  Company Number: US-B.I. PHARMACEUTICALS,INC./RIDGEFIELD-2011-BP-01068BP

PATIENT
  Age: 85 Year
  Sex: Male
  Weight: 108.9 kg

DRUGS (4)
  1. LISINOPRIL [Concomitant]
  2. MULTAQ [Concomitant]
  3. PRADAXA [Suspect]
     Indication: ATRIAL FIBRILLATION
     Dosage: 300 MG
     Dates: start: 20101101, end: 20101215
  4. LASIX [Concomitant]

REACTIONS (4)
  - HAEMORRHAGE [None]
  - EPISTAXIS [None]
  - HAEMORRHOIDAL HAEMORRHAGE [None]
  - SCRATCH [None]
